FAERS Safety Report 9279834 (Version 1)
Quarter: 2013Q2

REPORT INFORMATION
  Report Type: Spontaneous
  Country: US (occurrence: US)
  Receive Date: 20130509
  Receipt Date: 20130509
  Transmission Date: 20140414
  Serious: No
  Sender: FDA-Public Use
  Company Number: US-BIOGENIDEC-2013BI040055

PATIENT
  Age: 62 Year
  Sex: Female

DRUGS (2)
  1. AVONEX [Suspect]
     Indication: MULTIPLE SCLEROSIS
     Route: 030
  2. AVONEX [Suspect]
     Indication: MULTIPLE SCLEROSIS
     Route: 030
     Dates: start: 20000522

REACTIONS (5)
  - Fear [Not Recovered/Not Resolved]
  - Drug dose omission [Recovered/Resolved]
  - Nervous system disorder [Unknown]
  - General symptom [Recovered/Resolved]
  - Feeling abnormal [Recovered/Resolved]
